FAERS Safety Report 12823980 (Version 1)
Quarter: 2016Q4

REPORT INFORMATION
  Report Type: Spontaneous
  Country: US (occurrence: US)
  Receive Date: 20161006
  Receipt Date: 20161006
  Transmission Date: 20170207
  Serious: Yes (Life-Threatening)
  Sender: FDA-Public Use
  Company Number: None

PATIENT
  Age: 26 Year
  Sex: Female
  Weight: 89.9 kg

DRUGS (1)
  1. REXULTI [Suspect]
     Active Substance: BREXPIPRAZOLE
     Indication: DEPRESSION
     Route: 048
     Dates: start: 20160401, end: 20161006

REACTIONS (7)
  - Acute respiratory failure [None]
  - Rhabdomyolysis [None]
  - Liver function test increased [None]
  - Acute kidney injury [None]
  - Diarrhoea [None]
  - Sepsis [None]
  - Haemodynamic instability [None]

NARRATIVE: CASE EVENT DATE: 20161006
